FAERS Safety Report 4369847-4 (Version None)
Quarter: 2004Q2

REPORT INFORMATION
  Report Type: 
  Country: None (occurrence: None)
  Receive Date: 20040527
  Receipt Date: 20040519
  Transmission Date: 20050107
  Serious: Yes (Other)
  Sender: FDA-Public Use
  Company Number: 2004033949

PATIENT
  Age: 64 Year
  Sex: Female

DRUGS (4)
  1. SULPERAZON (CEFOPERAZON, SULBACTAM) [Suspect]
     Indication: ILL-DEFINED DISORDER
     Dosage: 2 GRAM (1 D), INTRAVENOUS
     Route: 042
     Dates: start: 20040406, end: 20040406
  2. MORPHINE [Concomitant]
  3. FENTANYL CITRATE [Concomitant]
  4. DROPERIDOL [Concomitant]

REACTIONS (2)
  - ANAPHYLACTIC SHOCK [None]
  - PROCEDURAL COMPLICATION [None]
